FAERS Safety Report 10079734 (Version 1)
Quarter: 2014Q2

REPORT INFORMATION
  Report Type: Spontaneous
  Country: US (occurrence: US)
  Receive Date: 20140415
  Receipt Date: 20140415
  Transmission Date: 20141212
  Serious: No
  Sender: FDA-Public Use
  Company Number: US-BAYER-2014-054610

PATIENT
  Age: 80 Year
  Sex: Female
  Weight: 56.69 kg

DRUGS (7)
  1. ALEVE TABLET [Suspect]
     Indication: BACK PAIN
     Dosage: 2 DF, QD
     Route: 048
     Dates: start: 201310
  2. OMEPRAZOLE [Concomitant]
  3. METOPROLOL [Concomitant]
  4. VITAMIN B12 [Concomitant]
  5. VITAMIN B6 [Concomitant]
  6. VIACTIV [CALCIUM CARBONATE,COLECALCIFEROL,PHYTOMENADIONE] [Concomitant]
  7. BIOTIN [Concomitant]

REACTIONS (2)
  - Alopecia [Not Recovered/Not Resolved]
  - Drug ineffective [None]
